FAERS Safety Report 21790197 (Version 1)
Quarter: 2022Q4

REPORT INFORMATION
  Report Type: Report from Study
  Country: US (occurrence: US)
  Receive Date: 20221228
  Receipt Date: 20221228
  Transmission Date: 20230112
  Serious: No
  Sender: FDA-Public Use
  Company Number: US-ABBVIE-22K-163-4534563-00

PATIENT
  Sex: Male

DRUGS (1)
  1. RINVOQ [Suspect]
     Active Substance: UPADACITINIB
     Indication: Product used for unknown indication
     Route: 048

REACTIONS (5)
  - Condition aggravated [Recovering/Resolving]
  - Diarrhoea [Unknown]
  - Defaecation urgency [Unknown]
  - Gastrointestinal pain [Unknown]
  - Arthralgia [Unknown]
